FAERS Safety Report 18240522 (Version 1)
Quarter: 2020Q3

REPORT INFORMATION
  Report Type: Spontaneous
  Country: US (occurrence: US)
  Receive Date: 20200904
  Receipt Date: 20200904
  Transmission Date: 20201103
  Serious: Yes (Other)
  Sender: FDA-Public Use
  Company Number: None

PATIENT
  Age: 56 Year
  Sex: Female

DRUGS (20)
  1. POT CHLORIDE [Concomitant]
     Active Substance: POTASSIUM CHLORIDE
  2. FENTANYL. [Concomitant]
     Active Substance: FENTANYL
  3. SILVER SULFA [Concomitant]
  4. ALBUTEROL. [Concomitant]
     Active Substance: ALBUTEROL
  5. TRAZODONE [Concomitant]
     Active Substance: TRAZODONE HYDROCHLORIDE
  6. FENOFIBRATE. [Concomitant]
     Active Substance: FENOFIBRATE
  7. FLUOXETINE [Concomitant]
     Active Substance: FLUOXETINE HYDROCHLORIDE
  8. TASIGNA [Suspect]
     Active Substance: NILOTINIB
     Indication: CHRONIC MYELOID LEUKAEMIA
     Route: 048
     Dates: start: 20190719
  9. PREGABALIN. [Concomitant]
     Active Substance: PREGABALIN
  10. CHLORHEX GLU [Concomitant]
  11. DULOXETINE. [Concomitant]
     Active Substance: DULOXETINE
  12. OXYCODONE AND ACETAMINOPHEN [Concomitant]
     Active Substance: ACETAMINOPHEN\OXYCODONE HYDROCHLORIDE
  13. LIDOCAINE. [Concomitant]
     Active Substance: LIDOCAINE
  14. CIMETIDINE [Concomitant]
     Active Substance: CIMETIDINE
  15. METHADONE [Concomitant]
     Active Substance: METHADONE HYDROCHLORIDE
  16. CLINDAMYCIN. [Concomitant]
     Active Substance: CLINDAMYCIN
  17. OXYCODONE [Concomitant]
     Active Substance: OXYCODONE
  18. EMEND [Concomitant]
     Active Substance: APREPITANT
  19. CALMOSEPTINE [Concomitant]
     Active Substance: MENTHOL\ZINC OXIDE
  20. FLUCONAZOLE. [Concomitant]
     Active Substance: FLUCONAZOLE

REACTIONS (4)
  - Arthralgia [None]
  - Fatigue [None]
  - Therapy interrupted [None]
  - Tongue neoplasm malignant stage unspecified [None]
